FAERS Safety Report 17356643 (Version 2)
Quarter: 2020Q2

REPORT INFORMATION
  Report Type: Spontaneous
  Country: US (occurrence: US)
  Receive Date: 20200131
  Receipt Date: 20200617
  Transmission Date: 20200713
  Serious: No
  Sender: FDA-Public Use
  Company Number: NVSC2020US025203

PATIENT
  Age: 56 Year
  Sex: Female

DRUGS (1)
  1. COSENTYX [Suspect]
     Active Substance: SECUKINUMAB
     Indication: PSORIATIC ARTHROPATHY
     Dosage: 300 MG, QMO (BENEATH THE SKIN, USUALLY VIA INJECTION)
     Route: 058
     Dates: start: 20200120

REACTIONS (4)
  - Psoriasis [Recovering/Resolving]
  - Incorrect dose administered [Unknown]
  - Injection site extravasation [Unknown]
  - Stress [Recovering/Resolving]

NARRATIVE: CASE EVENT DATE: 20200120
